FAERS Safety Report 5756845-9 (Version None)
Quarter: 2008Q2

REPORT INFORMATION
  Report Type: 
  Country: None (occurrence: None)
  Receive Date: 20080603
  Receipt Date: 20080527
  Transmission Date: 20081010
  Serious: Yes (Hospitalization)
  Sender: FDA-Public Use
  Company Number: US-AMGEN-QUU264617

PATIENT
  Sex: Female

DRUGS (2)
  1. ENBREL [Suspect]
     Indication: PSORIATIC ARTHROPATHY
     Route: 058
     Dates: start: 20030601
  2. ENBREL [Suspect]
     Indication: PSORIASIS

REACTIONS (5)
  - INJECTION SITE PAIN [None]
  - LIGAMENT RUPTURE [None]
  - SKELETAL INJURY [None]
  - SYNOVIAL DISORDER [None]
  - TIBIA FRACTURE [None]
